FAERS Safety Report 4448291-5 (Version None)
Quarter: 2004Q3

REPORT INFORMATION
  Report Type: 
  Country: None (occurrence: None)
  Receive Date: 20040910
  Receipt Date: 20040830
  Transmission Date: 20050211
  Serious: Yes (Hospitalization)
  Sender: FDA-Public Use
  Company Number: 2004060567

PATIENT
  Sex: Male

DRUGS (2)
  1. MYADEC (MULTIVITAMINS, MINERALS) [Suspect]
     Dosage: ORAL
     Route: 048
  2. CENTRUM (MINERALS NOS, VITAMINS NOS) [Concomitant]

REACTIONS (1)
  - CEREBROVASCULAR ACCIDENT [None]
